FAERS Safety Report 4677502-6 (Version None)
Quarter: 2005Q2

REPORT INFORMATION
  Report Type: 
  Country: None (occurrence: None)
  Receive Date: 20050527
  Receipt Date: 20050527
  Transmission Date: 20051028
  Serious: Yes (Death)
  Sender: FDA-Public Use
  Company Number: None

PATIENT
  Age: 67 Year
  Sex: Female
  Weight: 128.368 kg

DRUGS (6)
  1. SINGULAIR [Suspect]
     Indication: ASTHMA
     Dosage: 10 MG  DAILY ORAL
     Route: 048
     Dates: start: 20050411, end: 20050501
  2. LIPITOR [Suspect]
     Indication: HYPERCHOLESTEROLAEMIA
     Dosage: DAILY  ORAL
     Route: 048
  3. LEXAPRO [Concomitant]
  4. IMIPRAMINE [Concomitant]
  5. LEVAQUIN [Concomitant]
  6. ALLEGRA D 24 HOUR [Concomitant]

REACTIONS (5)
  - ABDOMINAL PAIN UPPER [None]
  - CONFUSIONAL STATE [None]
  - HEPATOTOXICITY [None]
  - HYPERBILIRUBINAEMIA [None]
  - JAUNDICE [None]
